FAERS Safety Report 25397687 (Version 1)
Quarter: 2025Q2

REPORT INFORMATION
  Report Type: Spontaneous
  Country: CN (occurrence: CN)
  Receive Date: 20250604
  Receipt Date: 20250604
  Transmission Date: 20250717
  Serious: Yes (Hospitalization, Other)
  Sender: PFIZER
  Company Number: CN-PFIZER INC-PV202500065628

PATIENT
  Age: 13 Year
  Sex: Male
  Weight: 34 kg

DRUGS (3)
  1. CYTARABINE [Suspect]
     Active Substance: CYTARABINE
     Indication: Acute lymphocytic leukaemia
     Dosage: 0.06 G, 2X/DAY (Q12H)
     Route: 058
     Dates: start: 20250412, end: 20250418
  2. CYCLOPHOSPHAMIDE [Suspect]
     Active Substance: CYCLOPHOSPHAMIDE
     Indication: Acute lymphocytic leukaemia
     Dosage: 1.23 G, 1X/DAY
     Route: 042
     Dates: start: 20250412, end: 20250412
  3. SODIUM CHLORIDE [Concomitant]
     Active Substance: SODIUM CHLORIDE
     Indication: Vehicle solution use
     Dosage: 150 ML, 1X/DAY
     Route: 042
     Dates: start: 20250412, end: 20250412

REACTIONS (2)
  - Myelosuppression [Recovering/Resolving]
  - Oral disorder [Recovering/Resolving]

NARRATIVE: CASE EVENT DATE: 20250426
